FAERS Safety Report 15694028 (Version 1)
Quarter: 2018Q4

REPORT INFORMATION
  Report Type: Spontaneous
  Country: GB (occurrence: GB)
  Receive Date: 20181206
  Receipt Date: 20181206
  Transmission Date: 20190205
  Serious: Yes (Hospitalization)
  Sender: FDA-Public Use
  Company Number: GB-SA-2018SA328959

PATIENT
  Age: 7 Year
  Sex: Male

DRUGS (3)
  1. RIFAMPICIN [Suspect]
     Active Substance: RIFAMPIN
     Indication: LATENT TUBERCULOSIS
     Dosage: 375 MG, QD
     Route: 048
  2. ISONIAZID. [Suspect]
     Active Substance: ISONIAZID
     Indication: LATENT TUBERCULOSIS
     Dosage: 250MG, QD
     Route: 048
  3. PYRIDOXINE [Concomitant]
     Active Substance: PYRIDOXINE
     Dosage: 10MG, QD
     Route: 048

REACTIONS (4)
  - Abdominal pain [Recovering/Resolving]
  - Nausea [Recovering/Resolving]
  - Vomiting [Recovering/Resolving]
  - Rash erythematous [Unknown]
